FAERS Safety Report 17824200 (Version 1)
Quarter: 2020Q2

REPORT INFORMATION
  Report Type: Spontaneous
  Country: NO (occurrence: NO)
  Receive Date: 20200526
  Receipt Date: 20200526
  Transmission Date: 20200714
  Serious: Yes (Other)
  Sender: FDA-Public Use
  Company Number: NO-TEVA-2020-NO-1239702

PATIENT
  Age: 63 Year
  Sex: Male

DRUGS (6)
  1. BRIDION [Concomitant]
     Active Substance: SUGAMMADEX
     Indication: NEUROMUSCULAR BLOCKADE REVERSAL
     Dosage: 100 MG
     Route: 042
     Dates: start: 20200503, end: 20200503
  2. PROPOFOL. [Concomitant]
     Active Substance: PROPOFOL
     Indication: INDUCTION OF ANAESTHESIA
     Dosage: 2-3 MG/KG, GIVEN AT 14:30
     Dates: start: 20200503, end: 20200503
  3. ESMERON [Concomitant]
     Active Substance: ROCURONIUM BROMIDE
     Indication: MUSCLE RELAXANT THERAPY
     Dosage: 50 MG GIVEN AT 14:30, ADDITIONAL 20 MG GIVEN LATER
     Route: 042
     Dates: start: 20200503, end: 20200503
  4. DOXYCYCLINE. [Suspect]
     Active Substance: DOXYCYCLINE
     Indication: CHOLECYSTECTOMY
     Dosage: GIVEN AT 15:40, 400 MG
     Dates: start: 20200503, end: 20200503
  5. FLAGYL [Suspect]
     Active Substance: METRONIDAZOLE\METRONIDAZOLE HYDROCHLORIDE
     Indication: CHOLECYSTECTOMY
     Dosage: GIVEN AT 15:40, 1 GRAM
     Route: 042
     Dates: start: 20200503, end: 20200503
  6. REMIFENTANIL [Concomitant]
     Active Substance: REMIFENTANIL
     Indication: INDUCTION OF ANAESTHESIA
     Dosage: 0.5 MICROGRAM/KG/MIN, GIVEN AT 14:30
     Route: 042
     Dates: start: 20200503, end: 20200503

REACTIONS (2)
  - Urticaria [Recovered/Resolved]
  - Hypotension [Recovered/Resolved]

NARRATIVE: CASE EVENT DATE: 20200503
